FAERS Safety Report 9161983 (Version 1)
Quarter: 2013Q1

REPORT INFORMATION
  Report Type: Spontaneous
  Country: CN (occurrence: CN)
  Receive Date: 20130314
  Receipt Date: 20130314
  Transmission Date: 20140127
  Serious: Yes (Death)
  Sender: FDA-Public Use
  Company Number: CN-JNJFOC-20130306230

PATIENT
  Sex: 0

DRUGS (6)
  1. DOXORUBICIN [Suspect]
     Indication: T-CELL LYMPHOMA
     Dosage: ON DAY 4
     Route: 042
  2. CYCLOPHOSPHAMIDE [Suspect]
     Indication: T-CELL LYMPHOMA
     Dosage: ON DAYS 1-3
     Route: 065
  3. DEXAMETHASONE [Suspect]
     Indication: T-CELL LYMPHOMA
     Dosage: ON DAYS 1-4 AND 11-14
     Route: 065
  4. CYTARABINE [Suspect]
     Indication: T-CELL LYMPHOMA
     Dosage: ON DAYS 2-3
     Route: 065
  5. VINCRISTINE [Suspect]
     Indication: T-CELL LYMPHOMA
     Dosage: DAY 4 AND 11
     Route: 065
  6. METHOTREXATE [Suspect]
     Indication: T-CELL LYMPHOMA
     Dosage: ON DAY 1
     Route: 065

REACTIONS (3)
  - Sepsis [Fatal]
  - Lung infection [Fatal]
  - Treatment failure [Unknown]
